FAERS Safety Report 11749287 (Version 1)
Quarter: 2015Q4

REPORT INFORMATION
  Report Type: Spontaneous
  Country: US (occurrence: None)
  Receive Date: 20151117
  Receipt Date: 20151117
  Transmission Date: 20160304
  Serious: Yes (Disabling)
  Sender: FDA-Public Use
  Company Number: None

PATIENT
  Age: 63 Year
  Sex: Female
  Weight: 54.43 kg

DRUGS (3)
  1. IBU [Concomitant]
     Active Substance: IBUPROFEN
  2. TYLENOL [Concomitant]
     Active Substance: ACETAMINOPHEN
  3. BONIVA [Suspect]
     Active Substance: IBANDRONATE SODIUM
     Indication: OSTEOPOROSIS
     Dosage: 2 INJECTIONS    1 INJECTION Q 3 MO    INTO A VEIN
     Route: 042
     Dates: start: 20101118, end: 20110120

REACTIONS (2)
  - Glaucoma [None]
  - Osteonecrosis of jaw [None]

NARRATIVE: CASE EVENT DATE: 20101118
